FAERS Safety Report 19234769 (Version 2)
Quarter: 2021Q2

REPORT INFORMATION
  Report Type: Spontaneous
  Country: FR (occurrence: FR)
  Receive Date: 20210509
  Receipt Date: 20210616
  Transmission Date: 20210717
  Serious: Yes (Other)
  Sender: FDA-Public Use
  Company Number: FR-ROCHE-2824807

PATIENT
  Age: 68 Year
  Sex: Female
  Weight: 93 kg

DRUGS (3)
  1. RIVOTRIL [Suspect]
     Active Substance: CLONAZEPAM
     Indication: NEURALGIA
     Dosage: 5 DROPS IN THE EVENING
     Route: 065
     Dates: start: 20210430
  2. RIVOTRIL [Suspect]
     Active Substance: CLONAZEPAM
     Dosage: 2.5MG/ML, 5 DROPS IN THE EVENING
     Route: 065
     Dates: start: 20210427
  3. ESOMEPRAZOLE. [Concomitant]
     Active Substance: ESOMEPRAZOLE MAGNESIUM

REACTIONS (2)
  - Abdominal pain [Recovered/Resolved]
  - Gastritis [Unknown]

NARRATIVE: CASE EVENT DATE: 20210501
